FAERS Safety Report 13399667 (Version 4)
Quarter: 2017Q4

REPORT INFORMATION
  Report Type: Report from Study
  Country: US (occurrence: US)
  Receive Date: 20170404
  Receipt Date: 20171229
  Transmission Date: 20180320
  Serious: Yes (Hospitalization, Other)
  Sender: FDA-Public Use
  Company Number: US-ALEXION PHARMACEUTICALS INC.-A201703241

PATIENT
  Sex: Male

DRUGS (2)
  1. SOLIRIS [Suspect]
     Active Substance: ECULIZUMAB
     Dosage: UNK
     Route: 065
  2. SOLIRIS [Suspect]
     Active Substance: ECULIZUMAB
     Indication: PAROXYSMAL NOCTURNAL HAEMOGLOBINURIA
     Dosage: UNK
     Route: 042

REACTIONS (9)
  - Gastroenteritis viral [Recovered/Resolved]
  - Hospitalisation [Recovered/Resolved]
  - Haemolysis [Unknown]
  - Blood bilirubin abnormal [Unknown]
  - Influenza [Recovered/Resolved]
  - Blood bilirubin increased [Unknown]
  - Diarrhoea [Unknown]
  - Haemoglobin decreased [Unknown]
  - Nasopharyngitis [Not Recovered/Not Resolved]

NARRATIVE: CASE EVENT DATE: 20170327
